FAERS Safety Report 12754960 (Version 3)
Quarter: 2016Q4

REPORT INFORMATION
  Report Type: Spontaneous
  Country: CH (occurrence: CH)
  Receive Date: 20160916
  Receipt Date: 20161006
  Transmission Date: 20170207
  Serious: Yes (Hospitalization)
  Sender: FDA-Public Use
  Company Number: CH-ABBVIE-16P-151-1729722-00

PATIENT
  Age: 59 Year
  Sex: Male

DRUGS (19)
  1. TEGRETOL [Interacting]
     Active Substance: CARBAMAZEPINE
     Route: 065
     Dates: start: 20160820, end: 20160820
  2. TEGRETOL [Interacting]
     Active Substance: CARBAMAZEPINE
     Route: 065
     Dates: start: 20160823, end: 20160825
  3. CRESTOR [Concomitant]
     Active Substance: ROSUVASTATIN CALCIUM
     Indication: PRODUCT USED FOR UNKNOWN INDICATION
  4. KLACID [Interacting]
     Active Substance: CLARITHROMYCIN
     Dosage: 400 MG
     Route: 048
     Dates: start: 20160821
  5. KLACID [Interacting]
     Active Substance: CLARITHROMYCIN
     Dosage: 200 MG
     Route: 048
     Dates: end: 20160825
  6. ASPIRIN CARDIO [Concomitant]
     Active Substance: ASPIRIN
     Indication: PRODUCT USED FOR UNKNOWN INDICATION
  7. KLACID [Interacting]
     Active Substance: CLARITHROMYCIN
     Dosage: 600 MG
     Route: 048
     Dates: start: 20160820, end: 20160820
  8. TEGRETOL [Interacting]
     Active Substance: CARBAMAZEPINE
     Route: 065
     Dates: start: 20160821, end: 20160822
  9. TEGRETOL [Interacting]
     Active Substance: CARBAMAZEPINE
     Indication: EPILEPSY
     Route: 048
     Dates: end: 20160819
  10. BELOC [Concomitant]
     Active Substance: METOPROLOL TARTRATE
     Indication: PRODUCT USED FOR UNKNOWN INDICATION
  11. DAFALGAN [Concomitant]
     Active Substance: ACETAMINOPHEN
     Indication: PRODUCT USED FOR UNKNOWN INDICATION
  12. TARGIN [Concomitant]
     Active Substance: NALOXONE HYDROCHLORIDE\OXYCODONE HYDROCHLORIDE
     Indication: PRODUCT USED FOR UNKNOWN INDICATION
  13. DEPAKINE [Suspect]
     Active Substance: VALPROATE SODIUM
     Indication: EPILEPSY
     Route: 048
  14. SYMFONA N [Concomitant]
     Active Substance: ORLISTAT
     Indication: PRODUCT USED FOR UNKNOWN INDICATION
  15. AUGMENTIN [Concomitant]
     Active Substance: AMOXICILLIN\CLAVULANATE POTASSIUM
     Indication: PRODUCT USED FOR UNKNOWN INDICATION
     Dates: start: 20160818, end: 20160820
  16. KLACID [Suspect]
     Active Substance: CLARITHROMYCIN
     Indication: PNEUMONIA
     Route: 048
     Dates: start: 20160818, end: 20160819
  17. CIPRALEX [Concomitant]
     Active Substance: ESCITALOPRAM OXALATE
     Indication: PRODUCT USED FOR UNKNOWN INDICATION
  18. PANTOZOL [Concomitant]
     Active Substance: PANTOPRAZOLE SODIUM
     Indication: PRODUCT USED FOR UNKNOWN INDICATION
  19. BECOZYME [Concomitant]
     Active Substance: VITAMINS
     Indication: PRODUCT USED FOR UNKNOWN INDICATION

REACTIONS (4)
  - Drug interaction [Recovered/Resolved]
  - Anticonvulsant drug level increased [Recovered/Resolved]
  - Sopor [Recovered/Resolved]
  - Drug ineffective [Recovered/Resolved]

NARRATIVE: CASE EVENT DATE: 20160818
